FAERS Safety Report 20921136 (Version 1)
Quarter: 2022Q2

REPORT INFORMATION
  Report Type: Spontaneous
  Country: BR (occurrence: BR)
  Receive Date: 20220606
  Receipt Date: 20220606
  Transmission Date: 20220720
  Serious: Yes (Hospitalization, Other)
  Sender: FDA-Public Use
  Company Number: BR-TAKEDA-2022TUS036692

PATIENT
  Age: 42 Year
  Sex: Female

DRUGS (9)
  1. HUMAN IMMUNOGLOBULIN G [Suspect]
     Active Substance: HUMAN IMMUNOGLOBULIN G
     Indication: Product used for unknown indication
     Dosage: 500 MILLIGRAM/KILOGRAM, Q4WEEKS
     Route: 042
     Dates: start: 2014, end: 2018
  2. HUMAN IMMUNOGLOBULIN G [Suspect]
     Active Substance: HUMAN IMMUNOGLOBULIN G
     Dosage: 2 GRAM
     Route: 042
     Dates: start: 2020
  3. HUMAN IMMUNOGLOBULIN G [Suspect]
     Active Substance: HUMAN IMMUNOGLOBULIN G
     Dosage: 500 MILLIGRAM/KILOGRAM, Q4WEEKS
     Route: 042
  4. HYQVIA [Suspect]
     Active Substance: HUMAN IMMUNOGLOBULIN G\HYALURONIDASE RECOMBINANT HUMAN
     Indication: Product used for unknown indication
     Dosage: 800 MILLIGRAM/KILOGRAM, 1/WEEK
     Route: 058
  5. PREDNISONE [Concomitant]
     Active Substance: PREDNISONE
     Dosage: 40 MILLIGRAM, QD
     Route: 065
  6. PREDNISONE [Concomitant]
     Active Substance: PREDNISONE
     Dosage: 20 MILLIGRAM, QD
     Route: 065
  7. GABAPENTIN [Concomitant]
     Active Substance: GABAPENTIN
  8. CREON [Concomitant]
     Active Substance: PANCRELIPASE AMYLASE\PANCRELIPASE LIPASE\PANCRELIPASE PROTEASE
  9. ESCITALOPRAM [Concomitant]
     Active Substance: ESCITALOPRAM OXALATE

REACTIONS (14)
  - Diarrhoea [Unknown]
  - Hypokalaemia [Unknown]
  - Paraesthesia [Unknown]
  - Respiratory disorder [Unknown]
  - Sepsis [Unknown]
  - Peripheral sensory neuropathy [Unknown]
  - Diverticulitis [Unknown]
  - Gastric ulcer [Unknown]
  - Conversion disorder [Unknown]
  - Mastitis [Unknown]
  - Gastritis [Unknown]
  - Duodenitis [Unknown]
  - Chronic gastritis [Unknown]
  - Colitis [Unknown]

NARRATIVE: CASE EVENT DATE: 20180101
